FAERS Safety Report 13195555 (Version 1)
Quarter: 2017Q1

REPORT INFORMATION
  Report Type: Report from Study
  Country: None (occurrence: AU)
  Receive Date: 20170208
  Receipt Date: 20170208
  Transmission Date: 20170428
  Serious: Yes (Hospitalization)
  Sender: FDA-Public Use
  Company Number: AU-ABBVIE-17K-008-1863136-00

PATIENT
  Age: 40 Year
  Sex: Female

DRUGS (5)
  1. ZOLOFT [Concomitant]
     Active Substance: SERTRALINE HYDROCHLORIDE
     Indication: DEPRESSION
  2. PROGOUT [Concomitant]
     Active Substance: ALLOPURINOL
     Indication: GASTROINTESTINAL INFLAMMATION
  3. PURINETHOL [Concomitant]
     Active Substance: MERCAPTOPURINE
     Indication: IMMUNOSUPPRESSION
  4. PANADOL [Concomitant]
     Active Substance: ACETAMINOPHEN
     Indication: ANALGESIC THERAPY
  5. HUMIRA [Suspect]
     Active Substance: ADALIMUMAB
     Indication: CROHN^S DISEASE
     Route: 058
     Dates: start: 201612

REACTIONS (10)
  - Cardiovascular disorder [Recovering/Resolving]
  - Dysarthria [Recovering/Resolving]
  - Somnolence [Unknown]
  - Vision blurred [Recovering/Resolving]
  - Migraine [Unknown]
  - Throat tightness [Unknown]
  - Hypoaesthesia [Unknown]
  - Feeling abnormal [Unknown]
  - Disturbance in attention [Unknown]
  - Paraesthesia [Unknown]

NARRATIVE: CASE EVENT DATE: 20170127
